FAERS Safety Report 14494025 (Version 2)
Quarter: 2018Q3

REPORT INFORMATION
  Report Type: Spontaneous
  Country: JP (occurrence: JP)
  Receive Date: 20180206
  Receipt Date: 20180815
  Transmission Date: 20181010
  Serious: Yes (Other)
  Sender: FDA-Public Use
  Company Number: JP-PFIZER INC-2018048298

PATIENT
  Sex: Male

DRUGS (1)
  1. GENOTROPIN 12 MG [Suspect]
     Active Substance: SOMATROPIN
     Dosage: UNK
     Dates: start: 20180112

REACTIONS (7)
  - Internal haemorrhage [Unknown]
  - Injection site extravasation [Unknown]
  - Wrong technique in device usage process [Unknown]
  - Injection site pain [Unknown]
  - Fatigue [Unknown]
  - Haemorrhage [Unknown]
  - Pain in extremity [Unknown]
